FAERS Safety Report 10083622 (Version 1)
Quarter: 2014Q2

REPORT INFORMATION
  Report Type: Spontaneous
  Country: US (occurrence: None)
  Receive Date: 20140416
  Receipt Date: 20140416
  Transmission Date: 20141212
  Serious: No
  Sender: FDA-Public Use
  Company Number: None

PATIENT
  Age: 62 Year
  Sex: Male
  Weight: 120.66 kg

DRUGS (1)
  1. CIPRO [Suspect]
     Indication: EPIDIDYMITIS
     Route: 048
     Dates: start: 20120525

REACTIONS (5)
  - Presyncope [None]
  - Myalgia [None]
  - Breast pain [None]
  - Gynaecomastia [None]
  - Psoriasis [None]
